FAERS Safety Report 4866649-7 (Version None)
Quarter: 2005Q4

REPORT INFORMATION
  Report Type: 
  Country: None (occurrence: None)
  Receive Date: 20051222
  Receipt Date: 20051212
  Transmission Date: 20060501
  Serious: Yes (Death, Other)
  Sender: FDA-Public Use
  Company Number: 2005168003

PATIENT
  Age: 86 Year
  Sex: Male

DRUGS (8)
  1. FLUCONAZOLE [Suspect]
     Indication: MYCOSIS FUNGOIDES
     Dosage: 50 MG (50 MG, DAILY), ORAL
     Route: 048
     Dates: start: 20051204
  2. BUFLOMEDIL (BUFLOMEDIL) [Concomitant]
  3. ACETYLSALICYLATE LYSINE (ACETYLSALICYLATE LYSINE) [Concomitant]
  4. MODURETIC 5-50 [Concomitant]
  5. AMLODIPINE [Concomitant]
  6. NATISPRAY (GLYCERYL TRINITRATE) [Concomitant]
  7. FENOFIBRATE [Concomitant]
  8. TANAKAN (GINKGO BILOBA EXTRACT) [Concomitant]

REACTIONS (2)
  - ANGIONEUROTIC OEDEMA [None]
  - ARRHYTHMIA [None]
